FAERS Safety Report 13711732 (Version 1)
Quarter: 2017Q3

REPORT INFORMATION
  Report Type: Report from Study
  Country: US (occurrence: US)
  Receive Date: 20170703
  Receipt Date: 20170703
  Transmission Date: 20171127
  Serious: Yes (Other)
  Sender: FDA-Public Use
  Company Number: US-ASTRAZENECA-2017SE67666

PATIENT
  Age: 78 Year
  Sex: Male
  Weight: 64.4 kg

DRUGS (11)
  1. OLAPARIB. [Suspect]
     Active Substance: OLAPARIB
     Indication: PROSTATE CANCER
     Route: 048
     Dates: start: 20170329, end: 20170628
  2. MIRALAX [Concomitant]
     Active Substance: POLYETHYLENE GLYCOL 3350
     Dosage: AS NEEDED.
  3. AVODART [Concomitant]
     Active Substance: DUTASTERIDE
     Dosage: DAILY
  4. ACLASTA [Concomitant]
     Active Substance: ZOLEDRONIC ACID
     Dosage: ONCE A YEAR
  5. TYLENOL [Concomitant]
     Active Substance: ACETAMINOPHEN
     Indication: PAIN
     Dosage: AS NEEDED.
  6. CIALIS [Concomitant]
     Active Substance: TADALAFIL
     Dosage: EVERY OTHER DAY
  7. VITAMIN D [Concomitant]
     Active Substance: CHOLECALCIFEROL
  8. BENZONATATE. [Concomitant]
     Active Substance: BENZONATATE
     Dosage: AS NEEDED.
  9. TRELSTAR [Concomitant]
     Active Substance: TRIPTORELIN PAMOATE
     Dosage: EVERY THREE MONTHS
  10. AMBIEN [Concomitant]
     Active Substance: ZOLPIDEM TARTRATE
     Dosage: AS NEEDED.
  11. MEDI4736 [Suspect]
     Active Substance: DURVALUMAB
     Indication: PROSTATE CANCER
     Route: 042
     Dates: start: 20170329, end: 20170523

REACTIONS (1)
  - Pneumonitis [Not Recovered/Not Resolved]

NARRATIVE: CASE EVENT DATE: 20170628
